FAERS Safety Report 7981458-8 (Version None)
Quarter: 2011Q4

REPORT INFORMATION
  Report Type: 
  Country: None (occurrence: None)
  Receive Date: 20111213
  Receipt Date: 20111128
  Transmission Date: 20120403
  Serious: Yes (Life-Threatening, Hospitalization, Other)
  Sender: FDA-Public Use
  Company Number: 2011P1013396

PATIENT
  Age: 78 Year
  Sex: Male

DRUGS (5)
  1. ATENOLOL [Concomitant]
  2. WARFARIN SODIUM [Suspect]
     Indication: ATRIAL FIBRILLATION
     Dosage: 3.75 MG;QD
  3. DONEPEZIL HCL [Concomitant]
  4. LACIDIPINE [Concomitant]
  5. QUETIAPINE [Suspect]
     Indication: DELUSION
     Dosage: 12.5 MG;QD

REACTIONS (5)
  - INTERNATIONAL NORMALISED RATIO INCREASED [None]
  - DRUG INTERACTION [None]
  - JEALOUS DELUSION [None]
  - DELUSION [None]
  - CEREBRAL HAEMORRHAGE [None]
